FAERS Safety Report 20334870 (Version 2)
Quarter: 2022Q1

REPORT INFORMATION
  Report Type: Spontaneous
  Country: JP (occurrence: JP)
  Receive Date: 20220114
  Receipt Date: 20220128
  Transmission Date: 20220423
  Serious: Yes (Death, Hospitalization, Other)
  Sender: FDA-Public Use
  Company Number: JP-ASTELLAS-2022JP000108

PATIENT
  Age: 9 Decade
  Sex: Male

DRUGS (5)
  1. PADCEV [Suspect]
     Active Substance: ENFORTUMAB VEDOTIN-EJFV
     Indication: Bladder cancer
     Dosage: 1.25 MG/KG/DAY, UNKNOWN FREQ.
     Route: 041
     Dates: start: 20211223, end: 20211230
  2. Myser [Concomitant]
     Indication: Erythema
     Dosage: UNK UNK, UNKNOWN FREQ.
     Route: 065
  3. Myser [Concomitant]
     Indication: Pruritus
  4. PETROLATUM [Concomitant]
     Active Substance: PETROLATUM
     Indication: Erythema
     Dosage: UNK UNK, UNKNOWN FREQ.
     Route: 065
  5. PETROLATUM [Concomitant]
     Active Substance: PETROLATUM
     Indication: Pruritus

REACTIONS (5)
  - Staphylococcal bacteraemia [Fatal]
  - Neutrophil count decreased [Recovering/Resolving]
  - Dermatitis bullous [Not Recovered/Not Resolved]
  - Erythema [Not Recovered/Not Resolved]
  - Pruritus [Not Recovered/Not Resolved]

NARRATIVE: CASE EVENT DATE: 20220101
